FAERS Safety Report 20199045 (Version 2)
Quarter: 2021Q4

REPORT INFORMATION
  Report Type: Report from Study
  Country: AT (occurrence: AT)
  Receive Date: 20211217
  Receipt Date: 20211231
  Transmission Date: 20220303
  Serious: Yes (Hospitalization)
  Sender: FDA-Public Use
  Company Number: AT-BIOGEN-2021BI01078008

PATIENT
  Age: 54 Year
  Sex: Female

DRUGS (2)
  1. TYSABRI [Suspect]
     Active Substance: NATALIZUMAB
     Indication: Multiple sclerosis
     Route: 065
     Dates: start: 20070307
  2. TYSABRI [Suspect]
     Active Substance: NATALIZUMAB
     Dosage: EVERY 6 WEEKS
     Route: 065
     Dates: start: 20070327

REACTIONS (3)
  - Pyelonephritis [Recovered/Resolved]
  - Pneumonia [Recovered/Resolved]
  - Prescribed underdose [Unknown]

NARRATIVE: CASE EVENT DATE: 20211113
